FAERS Safety Report 20217010 (Version 1)
Quarter: 2021Q4

REPORT INFORMATION
  Report Type: Spontaneous
  Country: PT (occurrence: PT)
  Receive Date: 20211222
  Receipt Date: 20211222
  Transmission Date: 20220303
  Serious: Yes (Hospitalization, Disabling, Other)
  Sender: FDA-Public Use
  Company Number: PT-MYLANLABS-2021M1078114

PATIENT
  Age: 73 Year
  Sex: Male

DRUGS (3)
  1. SPIRONOLACTONE [Suspect]
     Active Substance: SPIRONOLACTONE
     Indication: Diabetic nephropathy
     Dosage: UNK
  2. SPIRONOLACTONE [Suspect]
     Active Substance: SPIRONOLACTONE
     Indication: Diabetes mellitus
  3. CANDESARTAN [Concomitant]
     Active Substance: CANDESARTAN
     Indication: Diabetic nephropathy
     Dosage: UNK
     Route: 065

REACTIONS (8)
  - Paraplegia [Unknown]
  - Hyperkalaemia [Recovered/Resolved]
  - Paralysis [Recovered/Resolved]
  - Metabolic acidosis [Unknown]
  - Gait disturbance [Recovered/Resolved]
  - Muscular weakness [Recovered/Resolved]
  - Chronic kidney disease [Unknown]
  - Bundle branch block left [Unknown]
